FAERS Safety Report 15897624 (Version 1)
Quarter: 2019Q1

REPORT INFORMATION
  Report Type: Report from Study
  Country: None (occurrence: US)
  Receive Date: 20190131
  Receipt Date: 20190131
  Transmission Date: 20190417
  Serious: Yes (Hospitalization, Other)
  Sender: FDA-Public Use
  Company Number: US-ABBVIE-19K-163-2640666-00

PATIENT
  Sex: Female

DRUGS (2)
  1. HUMIRA [Suspect]
     Active Substance: ADALIMUMAB
     Indication: PSORIATIC ARTHROPATHY
     Route: 058
  2. HUMIRA [Suspect]
     Active Substance: ADALIMUMAB
     Indication: PSORIASIS

REACTIONS (8)
  - Diarrhoea [Recovered/Resolved]
  - Weight decreased [Unknown]
  - Inflammation [Unknown]
  - Therapeutic response shortened [Unknown]
  - Food allergy [Unknown]
  - Bone pain [Unknown]
  - Gastrointestinal disorder [Recovering/Resolving]
  - Polyp [Unknown]
